FAERS Safety Report 15747239 (Version 2)
Quarter: 2019Q1

REPORT INFORMATION
  Report Type: Spontaneous
  Country: US (occurrence: US)
  Receive Date: 20181220
  Receipt Date: 20190130
  Transmission Date: 20190417
  Serious: Yes (Other)
  Sender: FDA-Public Use
  Company Number: US-DSJP-DSU-2017-150017

PATIENT

DRUGS (3)
  1. BENICAR HCT [Suspect]
     Active Substance: HYDROCHLOROTHIAZIDE\OLMESARTAN MEDOXOMIL
     Indication: HYPERTENSION
     Dosage: 20/12.5MG,QD
     Route: 048
     Dates: start: 200507, end: 20050801
  2. BENICAR HCT [Suspect]
     Active Substance: HYDROCHLOROTHIAZIDE\OLMESARTAN MEDOXOMIL
     Dosage: 20/12.5MG,QD
     Route: 048
     Dates: end: 20170519
  3. BENICAR [Suspect]
     Active Substance: OLMESARTAN MEDOXOMIL
     Indication: HYPERTENSION
     Dosage: 40 MG, QD
     Route: 048
     Dates: start: 20120410, end: 20170519

REACTIONS (8)
  - Diverticulum [Not Recovered/Not Resolved]
  - Gastritis [Not Recovered/Not Resolved]
  - Haemorrhoids [Unknown]
  - Hypokalaemia [Recovered/Resolved]
  - Inflammatory bowel disease [Not Recovered/Not Resolved]
  - Umbilical hernia [Unknown]
  - Constipation [Not Recovered/Not Resolved]
  - Gastrooesophageal reflux disease [Not Recovered/Not Resolved]

NARRATIVE: CASE EVENT DATE: 200507
